FAERS Safety Report 7884420-9 (Version None)
Quarter: 2011Q4

REPORT INFORMATION
  Report Type: 
  Country: None (occurrence: None)
  Receive Date: 20111102
  Receipt Date: 20110926
  Transmission Date: 20120403
  Serious: Yes (Life-Threatening)
  Sender: FDA-Public Use
  Company Number: US-ASTRAZENECA-2011SE41780

PATIENT
  Age: 56 Year
  Sex: Female
  Weight: 60.3 kg

DRUGS (12)
  1. DILAUDID [Concomitant]
     Indication: PAIN
     Route: 048
  2. PROZAC [Concomitant]
     Indication: DEPRESSION
     Route: 048
  3. XANAX [Concomitant]
     Indication: ANXIETY
     Route: 048
  4. CALCIUM [Concomitant]
     Indication: HYPOCALCAEMIA
     Route: 048
  5. SYNTHROID [Concomitant]
     Indication: HYPOTHYROIDISM
     Route: 048
  6. MIRALAX [Concomitant]
     Indication: CONSTIPATION
     Route: 048
  7. COUMADIN [Concomitant]
     Indication: ATRIAL FIBRILLATION
     Route: 048
  8. RESTORIL [Concomitant]
     Indication: INSOMNIA
     Route: 048
  9. KLOR-CON M20 [Concomitant]
     Indication: HYPOKALAEMIA
     Route: 048
  10. VANDETANIB [Suspect]
     Indication: THYROID CANCER
     Route: 048
     Dates: start: 20110518, end: 20110701
  11. MS CONTIN [Concomitant]
     Indication: PAIN
     Route: 048
  12. ROCALTROL [Concomitant]
     Indication: HYPOCALCAEMIA
     Route: 048

REACTIONS (1)
  - CEREBROVASCULAR ACCIDENT [None]
